FAERS Safety Report 5805336-5 (Version None)
Quarter: 2008Q3

REPORT INFORMATION
  Report Type: 
  Country: None (occurrence: None)
  Receive Date: 20080709
  Receipt Date: 20080702
  Transmission Date: 20090109
  Serious: Yes (Other)
  Sender: FDA-Public Use
  Company Number: US-ELI_LILLY_AND_COMPANY-US200807000699

PATIENT
  Sex: Male

DRUGS (5)
  1. HUMALOG [Suspect]
  2. OXYCONTIN [Concomitant]
     Indication: PAIN IN EXTREMITY
  3. PERCOCET [Concomitant]
     Indication: PAIN IN EXTREMITY
  4. COUMADIN [Concomitant]
  5. LANTUS [Concomitant]

REACTIONS (7)
  - ATRIAL FIBRILLATION [None]
  - DIABETIC NEUROPATHY [None]
  - EYE HAEMORRHAGE [None]
  - FEMUR FRACTURE [None]
  - OEDEMA [None]
  - RESTLESS LEGS SYNDROME [None]
  - SKIN LESION [None]
